FAERS Safety Report 23743441 (Version 1)
Quarter: 2024Q2

REPORT INFORMATION
  Report Type: Spontaneous
  Country: JP (occurrence: JP)
  Receive Date: 20240415
  Receipt Date: 20240415
  Transmission Date: 20240716
  Serious: Yes (Hospitalization, Disabling, Other)
  Sender: FDA-Public Use
  Company Number: JP-PFIZER INC-PV202400047713

PATIENT
  Age: 74 Year
  Sex: Female
  Weight: 47 kg

DRUGS (10)
  1. RHEUMATREX [Suspect]
     Active Substance: METHOTREXATE SODIUM
     Indication: Rheumatoid arthritis
     Dosage: 2 DF ONCE IN THE MORNING ON SUNDAY
     Route: 048
  2. HUMIRA [Suspect]
     Active Substance: ADALIMUMAB
     Indication: Rheumatoid arthritis
     Dosage: UNK, EVERY 3 WEEKS ON TUESDAY
     Route: 058
  3. ATORVASTATIN CALCIUM [Concomitant]
     Active Substance: ATORVASTATIN CALCIUM
     Dosage: 5 MG, 1X/DAY AFTER BREAKFAST
  4. ASPIRIN [Concomitant]
     Active Substance: ASPIRIN
     Dosage: 100 MG, 1X/DAY AFTER BREAKFAST
  5. CELECOXIB [Concomitant]
     Active Substance: CELECOXIB
     Dosage: 100 MG, 1X/DAY AFTER BREAKFAST
  6. ELDECALCITOL [Concomitant]
     Active Substance: ELDECALCITOL
     Dosage: 0.5 UG, 1X/DAY AFTER BREAKFAST
  7. FOSMICIN [FOSFOMYCIN CALCIUM] [Concomitant]
     Dosage: 500 MG, 1X/DAY AFTER DINNER
  8. HYDREA [Concomitant]
     Active Substance: HYDROXYUREA
     Dosage: 1 DF, 1X/DAY AFTER BREAKFAST
     Route: 048
  9. MOXIFLOXACIN HYDROCHLORIDE [Concomitant]
     Active Substance: MOXIFLOXACIN HYDROCHLORIDE\MOXIFLOXACIN HYDROCHLORIDE MONOHYDRATE
     Dosage: UNK, 4X/DAY APPLIED TO THE RIGHT EYE
     Route: 047
  10. TEPRENONE [Concomitant]
     Active Substance: TEPRENONE
     Dosage: 50 MG, 1X/DAY AFTER BREAKFAST

REACTIONS (4)
  - Blindness unilateral [Recovered/Resolved with Sequelae]
  - Enterococcal infection [Unknown]
  - Infection susceptibility increased [Unknown]
  - Eye operation [Unknown]

NARRATIVE: CASE EVENT DATE: 20231207
